FAERS Safety Report 6672582-0 (Version None)
Quarter: 2010Q2

REPORT INFORMATION
  Report Type: 
  Country: None (occurrence: None)
  Receive Date: 20100406
  Receipt Date: 20100322
  Transmission Date: 20101027
  Serious: Yes (Death, Hospitalization)
  Sender: FDA-Public Use
  Company Number: 2010AL001901

PATIENT
  Age: 74 Year
  Sex: Male

DRUGS (2)
  1. VINORELBINE               10MG/ML [Suspect]
     Indication: LUNG NEOPLASM MALIGNANT
     Dosage: 15 MG; IV
     Route: 042
     Dates: start: 20090518, end: 20090717
  2. CISPLATIN [Concomitant]

REACTIONS (2)
  - INTERSTITIAL LUNG DISEASE [None]
  - RADIATION PNEUMONITIS [None]
